FAERS Safety Report 13848853 (Version 3)
Quarter: 2017Q4

REPORT INFORMATION
  Report Type: Spontaneous
  Country: US (occurrence: US)
  Receive Date: 20170809
  Receipt Date: 20171108
  Transmission Date: 20180320
  Serious: No
  Sender: FDA-Public Use
  Company Number: US-009507513-1708USA003717

PATIENT
  Sex: Female
  Weight: 72.56 kg

DRUGS (1)
  1. NEXPLANON [Suspect]
     Active Substance: ETONOGESTREL
     Dosage: 68 MG/1 ROD, EVERY 3 YEARS
     Route: 059
     Dates: start: 20160414, end: 20170804

REACTIONS (2)
  - Device breakage [Recovered/Resolved]
  - No adverse event [Unknown]
